FAERS Safety Report 4932317-6 (Version None)
Quarter: 2006Q1

REPORT INFORMATION
  Report Type: 
  Country: None (occurrence: None)
  Receive Date: 20060228
  Receipt Date: 20060213
  Transmission Date: 20060701
  Serious: Yes (Other)
  Sender: FDA-Public Use
  Company Number: S06-FRA-00607-01

PATIENT
  Age: 62 Year
  Sex: Female

DRUGS (10)
  1. ESCITALOPRAM OXALATE [Suspect]
     Indication: DEPRESSION
     Dosage: 5 MG QD PO
     Route: 048
     Dates: start: 20051101, end: 20051121
  2. ESCITALOPRAM OXALATE [Suspect]
     Indication: DEPRESSION
     Dosage: 10 MG QD PO
     Route: 048
     Dates: start: 20051122
  3. INTERFERON ALFA [Suspect]
     Indication: HEPATITIS C
     Dates: start: 20050920
  4. RIBAVIRINE (RIBAVIRIN) [Suspect]
     Indication: HEPATITIS C
     Dates: start: 20050920
  5. LEVOTHYROXINE SODIUM [Suspect]
     Indication: HYPOTHYROIDISM
  6. ACETAMINOPHEN [Concomitant]
  7. ZOLPIDEM [Concomitant]
  8. URBANYL (CLOBAZAM) [Concomitant]
  9. DOMPERIDONE [Concomitant]
  10. DIOSMIN [Concomitant]

REACTIONS (3)
  - ATRIAL FIBRILLATION [None]
  - DRUG INTERACTION [None]
  - SUPRAVENTRICULAR EXTRASYSTOLES [None]
